FAERS Safety Report 19753590 (Version 1)
Quarter: 2021Q3

REPORT INFORMATION
  Report Type: Spontaneous
  Country: US (occurrence: US)
  Receive Date: 20210826
  Receipt Date: 20210826
  Transmission Date: 20211014
  Serious: No
  Sender: FDA-Public Use
  Company Number: None

PATIENT
  Age: 45 Year
  Sex: Female
  Weight: 71.8 kg

DRUGS (2)
  1. DOCETAXEL 75 MG/M2 [Suspect]
     Active Substance: DOCETAXEL
     Indication: BREAST CANCER
     Dates: start: 20210730
  2. CYCLOPHOSPAMIDE Q3W [Concomitant]
     Dates: start: 20210730

REACTIONS (4)
  - Abdominal discomfort [None]
  - Chest pain [None]
  - Blood pressure increased [None]
  - Nausea [None]

NARRATIVE: CASE EVENT DATE: 20210730
